FAERS Safety Report 25567196 (Version 1)
Quarter: 2025Q3

REPORT INFORMATION
  Report Type: Spontaneous
  Country: US (occurrence: None)
  Receive Date: 20250715
  Receipt Date: 20250715
  Transmission Date: 20251020
  Serious: Yes (Life-Threatening, Hospitalization, Other)
  Sender: FDA-CTU
  Company Number: None

PATIENT
  Age: 72 Year
  Sex: Female
  Weight: 64.35 kg

DRUGS (18)
  1. SEMAGLUTIDE [Suspect]
     Active Substance: SEMAGLUTIDE
     Indication: Overweight
     Route: 058
     Dates: end: 20250629
  2. SEMAGLUTIDE [Suspect]
     Active Substance: SEMAGLUTIDE
     Indication: Hypertension
  3. LEVOCARNITINE\TIRZEPATIDE [Suspect]
     Active Substance: LEVOCARNITINE\TIRZEPATIDE
  4. AMLODIPINE [Concomitant]
     Active Substance: AMLODIPINE BESYLATE
  5. timolol drops [Concomitant]
  6. PANTOPRAZOLE [Concomitant]
     Active Substance: PANTOPRAZOLE
  7. ASPIRIN [Concomitant]
     Active Substance: ASPIRIN
  8. acetiminophen [Concomitant]
  9. amityptyline [Concomitant]
  10. VITAMINS [Concomitant]
     Active Substance: VITAMINS
  11. MINERALS\VITAMINS [Concomitant]
     Active Substance: MINERALS\VITAMINS
  12. Bone Restore with D3 [Concomitant]
  13. COENZYME Q10 [Concomitant]
     Active Substance: DIETARY SUPPLEMENT\UBIDECARENONE
  14. calcium chews [Concomitant]
  15. Culturelle prebiotic [Concomitant]
  16. Metamucil gummies [Concomitant]
  17. antioxidant supplement [Concomitant]
  18. Arterial Protect [Concomitant]

REACTIONS (6)
  - Abdominal pain upper [None]
  - Therapy interrupted [None]
  - Diarrhoea [None]
  - Nausea [None]
  - Vomiting [None]
  - Complicated appendicitis [None]

NARRATIVE: CASE EVENT DATE: 20250705
